FAERS Safety Report 15782056 (Version 1)
Quarter: 2019Q1

REPORT INFORMATION
  Report Type: Spontaneous
  Country: US (occurrence: US)
  Receive Date: 20190102
  Receipt Date: 20190102
  Transmission Date: 20190417
  Serious: No
  Sender: FDA-Public Use
  Company Number: US-PFIZER INC-2018537127

PATIENT
  Age: 82 Year
  Sex: Female
  Weight: 74.84 kg

DRUGS (4)
  1. LYRICA [Suspect]
     Active Substance: PREGABALIN
     Indication: CARDIAC FAILURE CONGESTIVE
  2. LYRICA [Suspect]
     Active Substance: PREGABALIN
     Indication: ATRIAL FIBRILLATION
  3. LYRICA [Suspect]
     Active Substance: PREGABALIN
     Indication: BACK PAIN
     Dosage: 1 DF, 3X/DAY
     Route: 048
  4. ACETAMINOPHEN;HYDROCODONE [Concomitant]
     Active Substance: ACETAMINOPHEN\HYDROCODONE
     Indication: PAIN
     Dosage: 2X/DAY UNK [HYDROCODONE: 10MG, PARACETAMOL: 325MG]
     Route: 048
     Dates: start: 2005

REACTIONS (1)
  - Hypertension [Recovering/Resolving]

NARRATIVE: CASE EVENT DATE: 20181214
